FAERS Safety Report 4817577-4 (Version None)
Quarter: 2005Q4

REPORT INFORMATION
  Report Type: 
  Country: None (occurrence: None)
  Receive Date: 20051031
  Receipt Date: 20051021
  Transmission Date: 20060501
  Serious: Yes (Other)
  Sender: FDA-Public Use
  Company Number: 2005-10-1272

PATIENT
  Age: 66 Year
  Sex: Male

DRUGS (2)
  1. INTRON A [Suspect]
     Indication: HEPATITIS C
     Dosage: INTRAMUSCULAR
     Route: 030
     Dates: start: 20040825, end: 20050207
  2. REBETOL [Suspect]
     Indication: HEPATITIS C
     Dosage: ORAL
     Route: 048
     Dates: start: 20040825, end: 20050207

REACTIONS (2)
  - HYPOAESTHESIA [None]
  - LACUNAR INFARCTION [None]
